FAERS Safety Report 21686229 (Version 2)
Quarter: 2022Q4

REPORT INFORMATION
  Report Type: Spontaneous
  Country: US (occurrence: None)
  Receive Date: 20221206
  Receipt Date: 20221207
  Transmission Date: 20230113
  Serious: Yes (Death)
  Sender: FDA-Public Use
  Company Number: US-ROCHE-3231814

PATIENT
  Weight: 81.720 kg

DRUGS (2)
  1. CELLCEPT [Suspect]
     Active Substance: MYCOPHENOLATE MOFETIL
     Indication: Product used for unknown indication
     Route: 065
  2. OFEV [Concomitant]
     Active Substance: NINTEDANIB

REACTIONS (1)
  - Lung disorder [Fatal]
